FAERS Safety Report 8035848-8 (Version None)
Quarter: 2012Q1

REPORT INFORMATION
  Report Type: 
  Country: None (occurrence: None)
  Receive Date: 20120111
  Receipt Date: 20111229
  Transmission Date: 20120608
  Serious: Yes (Hospitalization)
  Sender: FDA-Public Use
  Company Number: US-CUBIST-2011S1000951

PATIENT
  Age: 32 Year
  Sex: Male

DRUGS (5)
  1. PIPERACILLIN AND TAZOBACTAM [Concomitant]
     Indication: DEVICE RELATED INFECTION
     Dosage: DOSE UNIT:U UNKNOWN
     Route: 065
  2. MICAFUNGIN [Concomitant]
     Indication: DEVICE RELATED INFECTION
     Dosage: DOSE UNIT:U UNKNOWN
     Route: 065
  3. CUBICIN [Suspect]
     Indication: PYREXIA
     Route: 042
  4. CUBICIN [Suspect]
     Indication: BLOOD CULTURE POSITIVE
     Route: 042
  5. VANCOMYCIN [Concomitant]
     Indication: DEVICE RELATED INFECTION
     Route: 065

REACTIONS (1)
  - STAPHYLOCOCCAL BACTERAEMIA [None]
